FAERS Safety Report 7912404-0 (Version None)
Quarter: 2011Q4

REPORT INFORMATION
  Report Type: 
  Country: None (occurrence: None)
  Receive Date: 20111114
  Receipt Date: 20111109
  Transmission Date: 20120403
  Serious: Yes (Hospitalization, Other)
  Sender: FDA-Public Use
  Company Number: JP-ABBOTT-11P-087-0851440-00

PATIENT
  Age: 29 Year
  Sex: Male
  Weight: 58 kg

DRUGS (5)
  1. HUMIRA [Suspect]
     Indication: CROHN'S DISEASE
     Route: 058
     Dates: start: 20110330, end: 20110330
  2. HUMIRA [Suspect]
     Dates: start: 20110427, end: 20110707
  3. HUMIRA [Suspect]
     Dates: start: 20110413, end: 20110413
  4. HUMIRA [Suspect]
     Dates: start: 20110824
  5. MESALAMINE [Concomitant]
     Indication: CROHN'S DISEASE
     Route: 048
     Dates: start: 20110824

REACTIONS (2)
  - GASTROINTESTINAL PERFORATION [None]
  - ABDOMINAL ABSCESS [None]
